FAERS Safety Report 17262114 (Version 1)
Quarter: 2020Q1

REPORT INFORMATION
  Report Type: Spontaneous
  Country: JP (occurrence: JP)
  Receive Date: 20200113
  Receipt Date: 20200113
  Transmission Date: 20200409
  Serious: Yes (Life-Threatening, Hospitalization)
  Sender: FDA-Public Use
  Company Number: JP-TEVA-2020-JP-1166654

PATIENT
  Age: 75 Year
  Sex: Male

DRUGS (1)
  1. MINOCYCLINE [Suspect]
     Active Substance: MINOCYCLINE HYDROCHLORIDE
     Indication: PYODERMA GANGRENOSUM
     Dosage: RECEIVING FROM 15 YEARS
     Route: 065

REACTIONS (6)
  - Cardiac valve discolouration [Recovered/Resolved]
  - Skin hyperpigmentation [Recovered/Resolved]
  - Aortic aneurysm [Recovered/Resolved]
  - Eye disorder [Recovered/Resolved]
  - Pulmonary oedema [Recovered/Resolved]
  - Mitral valve incompetence [Recovered/Resolved]
